FAERS Safety Report 5678999-5 (Version None)
Quarter: 2008Q1

REPORT INFORMATION
  Report Type: 
  Country: None (occurrence: None)
  Receive Date: 20080325
  Receipt Date: 20080324
  Transmission Date: 20080703
  Serious: Yes (Other)
  Sender: FDA-Public Use
  Company Number: A0716874A

PATIENT
  Age: 72 Year
  Sex: Female
  Weight: 80 kg

DRUGS (2)
  1. SERETIDE [Suspect]
     Indication: ASTHMA
     Dates: start: 20061201
  2. BUDECORT [Concomitant]
     Dates: start: 20030101

REACTIONS (1)
  - HEPATITIS [None]
